FAERS Safety Report 13543200 (Version 1)
Quarter: 2017Q2

REPORT INFORMATION
  Report Type: Not Available
  Country: US (occurrence: US)
  Receive Date: 20170514
  Receipt Date: 20170514
  Transmission Date: 20170830
  Serious: No
  Sender: FDA-Public Use
  Company Number: US-HISAMITSU-2017-US-003009

PATIENT
  Age: 74 Year
  Sex: Female
  Weight: 38.56 kg

DRUGS (3)
  1. GABAPENTIN. [Concomitant]
     Active Substance: GABAPENTIN
  2. SALONPAS PAIN RELIEF [Suspect]
     Active Substance: MENTHOL\METHYL SALICYLATE
     Dosage: 5 PATCHES FOR 8 HOURS
     Route: 061
     Dates: start: 20170220
  3. CLOBETASOL OINTMENT [Concomitant]
     Active Substance: CLOBETASOL

REACTIONS (3)
  - Intentional product misuse [Unknown]
  - Drug ineffective [Unknown]
  - Hallucination, gustatory [Recovered/Resolved]

NARRATIVE: CASE EVENT DATE: 20170220
